FAERS Safety Report 5475830-8 (Version None)
Quarter: 2007Q4

REPORT INFORMATION
  Report Type: 
  Country: None (occurrence: None)
  Receive Date: 20071003
  Receipt Date: 20071002
  Transmission Date: 20080405
  Serious: Yes (Other)
  Sender: FDA-Public Use
  Company Number: B0489407A

PATIENT
  Sex: Female

DRUGS (11)
  1. PAXIL [Suspect]
     Dosage: 20MG PER DAY
     Route: 048
  2. DESYREL [Concomitant]
     Route: 048
  3. HIRNAMIN [Concomitant]
     Route: 065
  4. AMOXAN [Concomitant]
     Route: 048
  5. RIVOTRIL [Concomitant]
     Route: 048
  6. MAGMITT [Concomitant]
     Route: 048
  7. RHYTHMY [Concomitant]
     Route: 048
  8. SERENAL [Concomitant]
     Route: 048
  9. DIAZEPAM [Concomitant]
     Route: 065
  10. ZOLPIDEM [Concomitant]
     Route: 048
  11. SULPIRIDE [Concomitant]
     Route: 065

REACTIONS (4)
  - DRUG INTERACTION [None]
  - EPISTAXIS [None]
  - HAEMORRHAGIC DISORDER [None]
  - PURPURA [None]
